FAERS Safety Report 22231915 (Version 2)
Quarter: 2023Q2

REPORT INFORMATION
  Report Type: Spontaneous
  Country: FR (occurrence: FR)
  Receive Date: 20230420
  Receipt Date: 20230505
  Transmission Date: 20230721
  Serious: Yes (Other)
  Sender: FDA-Public Use
  Company Number: FR-AUROBINDO-AUR-APL-2023-030819

PATIENT
  Age: 52 Year
  Sex: Female

DRUGS (13)
  1. DOCETAXEL [Suspect]
     Active Substance: DOCETAXEL
     Indication: Tuberous sclerosis complex
     Dosage: 75 MILLIGRAM/SQ. METER, 11 CYCLES
     Route: 065
     Dates: start: 20200401
  2. DOCETAXEL [Suspect]
     Active Substance: DOCETAXEL
     Indication: Sarcoma metastatic
  3. DOXORUBICIN [Suspect]
     Active Substance: DOXORUBICIN
     Indication: Tuberous sclerosis complex
     Dosage: 75 MILLIGRAM/SQ. METER
     Route: 065
  4. DOXORUBICIN [Suspect]
     Active Substance: DOXORUBICIN
     Indication: Sarcoma metastatic
  5. GEMCITABINE [Suspect]
     Active Substance: GEMCITABINE
     Indication: Tuberous sclerosis complex
     Dosage: 900 MILLIGRAM/SQ. METER
     Route: 065
     Dates: start: 20200401
  6. GEMCITABINE [Suspect]
     Active Substance: GEMCITABINE
     Indication: Sarcoma metastatic
     Dosage: 800 MILLIGRAM/SQ. METER
     Route: 065
     Dates: start: 20210929
  7. GEMCITABINE [Suspect]
     Active Substance: GEMCITABINE
     Dosage: 900 MILLIGRAM/SQ. METER
     Route: 065
     Dates: start: 20220321
  8. DACARBAZINE [Suspect]
     Active Substance: DACARBAZINE
     Indication: Tuberous sclerosis complex
     Dosage: 750 MILLIGRAM/SQ. METER
     Route: 065
  9. DACARBAZINE [Suspect]
     Active Substance: DACARBAZINE
     Indication: Sarcoma metastatic
  10. SIROLIMUS [Suspect]
     Active Substance: SIROLIMUS
     Indication: Tuberous sclerosis complex
     Dosage: 100 MILLIGRAM/SQ. METER, SIX CYCLES
     Route: 065
  11. SIROLIMUS [Suspect]
     Active Substance: SIROLIMUS
     Indication: Sarcoma metastatic
     Dosage: 5 MILLIGRAM, DAILY
     Route: 065
  12. SIROLIMUS [Suspect]
     Active Substance: SIROLIMUS
     Dosage: 7 MILLIGRAM
     Route: 065
     Dates: start: 20220321
  13. SIROLIMUS [Suspect]
     Active Substance: SIROLIMUS
     Dosage: 5 MILLIGRAM
     Route: 065
     Dates: end: 20220404

REACTIONS (3)
  - Drug ineffective [Unknown]
  - Off label use [Unknown]
  - Disease progression [Not Recovered/Not Resolved]

NARRATIVE: CASE EVENT DATE: 20201201
